FAERS Safety Report 4345232-6 (Version None)
Quarter: 2004Q2

REPORT INFORMATION
  Report Type: 
  Country: None (occurrence: None)
  Receive Date: 20040420
  Receipt Date: 20040405
  Transmission Date: 20050107
  Serious: Yes (Other)
  Sender: FDA-Public Use
  Company Number: A-CH2004-05645

PATIENT
  Age: 69 Year
  Sex: Female
  Weight: 70 kg

DRUGS (10)
  1. TRACLEER [Suspect]
     Indication: PULMONARY HYPERTENSION
     Dosage: 62.5, BID, ORAL; 125 MG, BID, ORAL
     Route: 048
     Dates: end: 20040120
  2. TRACLEER [Suspect]
     Indication: PULMONARY HYPERTENSION
     Dosage: 62.5, BID, ORAL; 125 MG, BID, ORAL
     Route: 048
     Dates: start: 20031211
  3. LASIX [Concomitant]
  4. PRINIVIL [Concomitant]
  5. DILTIAZEM HYDROCHLORIDE [Concomitant]
  6. SINTROM [Concomitant]
  7. PREZOLON (PREDNISOLONE) [Concomitant]
  8. LEXOTANIL (BROMAZEPAM) [Concomitant]
  9. ACTONEL [Concomitant]
  10. CALCIEREL [Concomitant]

REACTIONS (5)
  - ALANINE AMINOTRANSFERASE INCREASED [None]
  - ASPARTATE AMINOTRANSFERASE INCREASED [None]
  - BLOOD BILIRUBIN INCREASED [None]
  - LIVER FUNCTION TEST ABNORMAL [None]
  - PRURITUS [None]
